FAERS Safety Report 8961175 (Version 4)
Quarter: 2013Q2

REPORT INFORMATION
  Report Type: Spontaneous
  Country: JP (occurrence: JP)
  Receive Date: 20121212
  Receipt Date: 20130627
  Transmission Date: 20140414
  Serious: Yes (Hospitalization)
  Sender: FDA-Public Use
  Company Number: JP-GLAXOSMITHKLINE-B0826798A

PATIENT
  Age: 50 Year
  Sex: Female
  Weight: 54 kg

DRUGS (32)
  1. LAMICTAL [Suspect]
     Indication: BIPOLAR I DISORDER
     Dosage: 25MG PER DAY
     Route: 048
     Dates: start: 20120611, end: 20120620
  2. LAMICTAL [Suspect]
     Indication: BIPOLAR I DISORDER
     Dosage: 50MG PER DAY
     Route: 048
     Dates: start: 20120621, end: 20120704
  3. LAMICTAL [Suspect]
     Indication: BIPOLAR I DISORDER
     Dosage: 75MG PER DAY
     Route: 048
     Dates: start: 20120705, end: 20120717
  4. LAMICTAL [Suspect]
     Indication: BIPOLAR I DISORDER
     Dosage: 100MG PER DAY
     Route: 048
     Dates: start: 20120718, end: 20120817
  5. LIMAS [Concomitant]
     Indication: BIPOLAR I DISORDER
     Dosage: 400MG TWICE PER DAY
     Route: 048
  6. MEILAX [Concomitant]
     Indication: SLEEP DISORDER
     Dosage: 1MG PER DAY
     Route: 048
     Dates: start: 20120618, end: 20120828
  7. WYPAX [Concomitant]
     Indication: ANXIETY
     Route: 048
     Dates: start: 20120627
  8. EVAMYL [Concomitant]
     Indication: INSOMNIA
     Route: 048
     Dates: start: 20120616, end: 20120625
  9. MYSLEE [Concomitant]
     Indication: INSOMNIA
     Route: 048
     Dates: start: 20120627, end: 20120707
  10. SEROQUEL [Concomitant]
     Indication: RESTLESSNESS
     Route: 048
     Dates: start: 20120627, end: 20120707
  11. LAXOBERON [Concomitant]
     Indication: CONSTIPATION
     Route: 048
     Dates: start: 20120621, end: 20120705
  12. TOPSYM [Concomitant]
     Dosage: 10G PER DAY
     Route: 061
     Dates: start: 20120614, end: 20120624
  13. VOLTAREN [Concomitant]
     Route: 054
     Dates: start: 20120606, end: 20120616
  14. KENEI G [Concomitant]
     Route: 054
     Dates: start: 20120610, end: 20120918
  15. MYTEAR [Concomitant]
     Route: 031
     Dates: start: 20120627, end: 20120804
  16. ZADITEN [Concomitant]
     Route: 031
     Dates: start: 20120627, end: 20120804
  17. SODIUM CHLORIDE SOLUTION.ISOTONIC [Concomitant]
     Route: 042
  18. CEFMETAZON [Concomitant]
     Dosage: 2G PER DAY
     Route: 042
     Dates: start: 20120623, end: 20120627
  19. VITAMEDIN [Concomitant]
     Dosage: 1IUAX PER DAY
     Route: 042
     Dates: start: 20120611, end: 20120622
  20. SOLDEM 3A [Concomitant]
     Route: 042
     Dates: start: 20120602, end: 20120628
  21. UNKNOWN DRUG [Concomitant]
     Dosage: 200MG PER DAY
     Route: 042
     Dates: start: 20120611
  22. BFLUID [Concomitant]
     Route: 042
     Dates: end: 20120625
  23. PEMIROC [Concomitant]
     Dosage: 2IUAX PER DAY
     Route: 042
     Dates: start: 20120625, end: 20120625
  24. PROPOFOL [Concomitant]
     Dosage: 1IUAX PER DAY
     Route: 042
     Dates: start: 20120611
  25. LACTEC-G [Concomitant]
     Dosage: 500ML PER DAY
     Route: 042
     Dates: start: 20120603, end: 20120623
  26. ZANTAC [Concomitant]
     Dosage: 1IUAX PER DAY
     Route: 042
     Dates: start: 20120604, end: 20120623
  27. VEEN-F [Concomitant]
     Route: 042
     Dates: start: 20120611
  28. NOVO HEPARIN [Concomitant]
     Route: 042
     Dates: start: 20120624, end: 20120628
  29. EPEL [Concomitant]
     Dosage: 50MG TWICE PER DAY
     Route: 048
     Dates: end: 20120613
  30. EPADEL S [Concomitant]
     Dosage: 900MG TWICE PER DAY
     Route: 048
     Dates: end: 20120613
  31. LAMISIL [Concomitant]
     Route: 061
     Dates: start: 20120710, end: 20120810
  32. LULICON [Concomitant]
     Dosage: 70G PER DAY
     Route: 061
     Dates: start: 20120731, end: 20120810

REACTIONS (15)
  - Lip erosion [Recovering/Resolving]
  - Stomatitis [Recovering/Resolving]
  - Rash [Recovering/Resolving]
  - Conjunctivitis [Unknown]
  - Conjunctivitis [Unknown]
  - Oculomucocutaneous syndrome [Recovered/Resolved]
  - Dermatitis [Unknown]
  - Pyrexia [Unknown]
  - Oral mucosal eruption [Unknown]
  - Enanthema [Unknown]
  - Erythema [Unknown]
  - Alanine aminotransferase increased [Unknown]
  - Eosinophil percentage increased [Unknown]
  - C-reactive protein increased [Unknown]
  - Stevens-Johnson syndrome [Unknown]
